FAERS Safety Report 16618682 (Version 2)
Quarter: 2019Q3

REPORT INFORMATION
  Report Type: Spontaneous
  Country: US (occurrence: US)
  Receive Date: 20190723
  Receipt Date: 20190729
  Transmission Date: 20191004
  Serious: No
  Sender: FDA-Public Use
  Company Number: US-ELI_LILLY_AND_COMPANY-US201907011972

PATIENT
  Sex: Female

DRUGS (2)
  1. TROKENDI XR [Concomitant]
     Active Substance: TOPIRAMATE
     Dosage: 25 MG AND 100 MG
     Route: 065
  2. EMGALITY [Suspect]
     Active Substance: GALCANEZUMAB-GNLM
     Indication: MIGRAINE
     Dosage: 120 MG, UNKNOWN
     Route: 065
     Dates: start: 201903

REACTIONS (4)
  - Injection site pain [Unknown]
  - Dizziness [Not Recovered/Not Resolved]
  - Product dose omission [Not Recovered/Not Resolved]
  - Migraine [Not Recovered/Not Resolved]

NARRATIVE: CASE EVENT DATE: 20190719
